FAERS Safety Report 21268331 (Version 1)
Quarter: 2022Q3

REPORT INFORMATION
  Report Type: Spontaneous
  Country: CN (occurrence: None)
  Receive Date: 20220830
  Receipt Date: 20220830
  Transmission Date: 20221027
  Serious: Yes (Other)
  Sender: FDA-Public Use
  Company Number: CN-ROCHE-3169286

PATIENT
  Age: 57 Year
  Sex: Male
  Weight: 52.5 kg

DRUGS (3)
  1. XELODA [Suspect]
     Active Substance: CAPECITABINE
     Indication: Oesophageal carcinoma
     Route: 048
     Dates: start: 20220711, end: 20220724
  2. CAMRELIZUMAB [Suspect]
     Active Substance: CAMRELIZUMAB
     Indication: Oesophageal carcinoma
     Route: 041
     Dates: start: 20220711, end: 20220711
  3. TISLELIZUMAB [Concomitant]
     Active Substance: TISLELIZUMAB

REACTIONS (3)
  - Capillary disorder [Recovering/Resolving]
  - Myelosuppression [Recovering/Resolving]
  - Off label use [Unknown]

NARRATIVE: CASE EVENT DATE: 20220808
